FAERS Safety Report 19165381 (Version 1)
Quarter: 2021Q2

REPORT INFORMATION
  Report Type: Spontaneous
  Country: US (occurrence: US)
  Receive Date: 20210420
  Receipt Date: 20210420
  Transmission Date: 20210717
  Serious: Yes (Hospitalization)
  Sender: FDA-Public Use
  Company Number: None

PATIENT
  Age: 45 Year
  Sex: Female
  Weight: 170 kg

DRUGS (3)
  1. SODIUM CHLORIDE 0.9 % INFUSION [Concomitant]
     Dates: start: 20210415, end: 20210415
  2. ETESEVIMAB. [Suspect]
     Active Substance: ETESEVIMAB
     Indication: COVID-19
     Route: 040
     Dates: start: 20210415, end: 20210415
  3. BAMLANIVIMAB. [Suspect]
     Active Substance: BAMLANIVIMAB
     Indication: COVID-19
     Route: 040
     Dates: start: 20210415, end: 20210415

REACTIONS (3)
  - Tachypnoea [None]
  - Oxygen saturation decreased [None]
  - Decreased appetite [None]

NARRATIVE: CASE EVENT DATE: 20210415
